FAERS Safety Report 4855587-1 (Version None)
Quarter: 2005Q4

REPORT INFORMATION
  Report Type: 
  Country: None (occurrence: None)
  Receive Date: 20051214
  Receipt Date: 20051201
  Transmission Date: 20060501
  Serious: Yes (Death)
  Sender: FDA-Public Use
  Company Number: 100863

PATIENT
  Age: 54 Year
  Sex: Female
  Weight: 49.7 kg

DRUGS (12)
  1. RITUXAN [Suspect]
     Indication: LYMPHOMA
     Dosage: 540 MG
     Dates: start: 20011130, end: 20011130
  2. CYCLOPHOSPHAMIDE [Suspect]
     Indication: LYMPHOMA
     Dosage: 1780 MG, Q4W, INTRAVENOUS
     Route: 042
     Dates: start: 20010911, end: 20011104
  3. CYTARABINE [Suspect]
     Indication: LYMPHOMA
     Dosage: 2960 MG, Q4W, INTRAVENOUS
     Route: 042
     Dates: start: 20010911, end: 20011204
  4. ETOPOSIDE [Suspect]
     Indication: LYMPHOMA
     Dosage: 150 MG, Q4W, INTRAVENOUS
     Route: 042
     Dates: start: 20010911, end: 20011204
  5. DEXAMETHASONE [Suspect]
     Indication: LYMPHOMA
     Dosage: 40 MG, Q4W, INTRAVENOUS
     Route: 042
     Dates: start: 20010911, end: 20011204
  6. MORPHINE [Concomitant]
  7. MORPHINE [Concomitant]
  8. RANIDITINE (RANITIDINE) [Concomitant]
  9. TEPRENONE (TEPRENONE) [Concomitant]
  10. AMPHOTERICIN B [Concomitant]
  11. SULFAMETHOXAZOLE + TRIMETHOPRIM [Concomitant]
  12. KYTRIL [Concomitant]

REACTIONS (11)
  - BONE MARROW FAILURE [None]
  - CONVULSION [None]
  - HYPOTENSION [None]
  - IMMUNOSUPPRESSION [None]
  - MULTI-ORGAN FAILURE [None]
  - PANCYTOPENIA [None]
  - PHARYNGEAL OEDEMA [None]
  - PNEUMONIA BACTERIAL [None]
  - PSEUDOMONAL BACTERAEMIA [None]
  - SEPSIS [None]
  - TACHYCARDIA [None]
